FAERS Safety Report 18088684 (Version 2)
Quarter: 2020Q3

REPORT INFORMATION
  Report Type: Spontaneous
  Country: US (occurrence: US)
  Receive Date: 20200729
  Receipt Date: 20200820
  Transmission Date: 20201103
  Serious: No
  Sender: FDA-Public Use
  Company Number: US-PFIZER INC-2020287985

PATIENT
  Age: 76 Year
  Sex: Female

DRUGS (11)
  1. TOPICAN [LIDOCAINE;PRILOCAINE] [Concomitant]
     Dosage: UNK
  2. IBRANCE [Suspect]
     Active Substance: PALBOCICLIB
     Indication: BREAST CANCER FEMALE
     Dosage: 125 MG, CYCLIC (1 DAILY FOR 21 DAYS)
     Route: 048
     Dates: start: 20200713
  3. OXYCODONE HYDROCHLORIDE. [Concomitant]
     Active Substance: OXYCODONE HYDROCHLORIDE
     Dosage: 10 MG
  4. PRAVASTATIN SODIUM. [Concomitant]
     Active Substance: PRAVASTATIN SODIUM
     Dosage: 40 MG
  5. PRILOSEC [Concomitant]
     Active Substance: OMEPRAZOLE MAGNESIUM
     Dosage: 20 MG
  6. VOLTAREN [DICLOFENAC] [Concomitant]
     Active Substance: DICLOFENAC SODIUM
     Indication: ARTHRITIS
     Dosage: UNK
  7. ROPINIROLE. [Concomitant]
     Active Substance: ROPINIROLE
     Dosage: 12 MG
  8. GABAPENTIN. [Concomitant]
     Active Substance: GABAPENTIN
     Dosage: 300 MG
  9. ARIMIDEX [Concomitant]
     Active Substance: ANASTROZOLE
     Dosage: 1 MG
  10. LETROZOLE. [Concomitant]
     Active Substance: LETROZOLE
     Dosage: 2.5 MG
  11. TOPROL XL [Concomitant]
     Active Substance: METOPROLOL SUCCINATE
     Dosage: 25 MG

REACTIONS (5)
  - Weight decreased [Unknown]
  - Decreased appetite [Unknown]
  - White blood cell count decreased [Unknown]
  - Nausea [Unknown]
  - Asthenia [Unknown]
